FAERS Safety Report 18393440 (Version 7)
Quarter: 2022Q1

REPORT INFORMATION
  Report Type: Other
  Country: CA (occurrence: None)
  Receive Date: 20201016
  Receipt Date: 20220210
  Transmission Date: 20220424
  Serious: No
  Sender: FDA-Public Use
  Company Number: CA-ROCHE-2418333

PATIENT
  Age: 42 Year
  Sex: Male

DRUGS (8)
  1. OCREVUS [Suspect]
     Active Substance: OCRELIZUMAB
     Indication: Relapsing-remitting multiple sclerosis
     Dosage: CONCENTRATE FOR INTRAVENOUS INFUSION, 300 MG AT DAY 0 AND 14, THEN 600 MG EVERY 6 MONTH
     Route: 042
     Dates: start: 20190911
  2. OCREVUS [Suspect]
     Active Substance: OCRELIZUMAB
     Dosage: CONCENTRATE FOR INTRAVENOUS INFUSION, 600 MG EVERY 6 MONTH ;ONGOING: YES
     Route: 042
  3. AMANTADINE [Concomitant]
     Active Substance: AMANTADINE
  4. LOSEC [Concomitant]
     Active Substance: OMEPRAZOLE
  5. BACLOFEN [Concomitant]
     Active Substance: BACLOFEN
  6. CANNABIS SATIVA SUBSP. INDICA TOP [Concomitant]
     Active Substance: CANNABIS SATIVA SUBSP. INDICA TOP
  7. GABAPENTIN [Concomitant]
     Active Substance: GABAPENTIN
  8. AMOXICILLIN [Concomitant]
     Active Substance: AMOXICILLIN
     Dosage: 3 PILLS A DAY FOR 7 DAYS
     Dates: start: 20190927

REACTIONS (15)
  - Abdominal discomfort [Unknown]
  - Rhinorrhoea [Unknown]
  - Cough [Not Recovered/Not Resolved]
  - Sinus congestion [Not Recovered/Not Resolved]
  - Sinusitis [Not Recovered/Not Resolved]
  - Lower respiratory tract infection [Not Recovered/Not Resolved]
  - Nasal congestion [Not Recovered/Not Resolved]
  - Pain [Recovering/Resolving]
  - Discomfort [Recovering/Resolving]
  - Headache [Recovering/Resolving]
  - Fatigue [Not Recovered/Not Resolved]
  - Sinus disorder [Unknown]
  - Influenza [Not Recovered/Not Resolved]
  - Therapeutic response shortened [Unknown]
  - Pain in extremity [Unknown]

NARRATIVE: CASE EVENT DATE: 20201011
